FAERS Safety Report 6182351-6 (Version None)
Quarter: 2009Q2

REPORT INFORMATION
  Report Type: 
  Country: None (occurrence: None)
  Receive Date: 20090507
  Receipt Date: 20090427
  Transmission Date: 20091009
  Serious: Yes (Hospitalization)
  Sender: FDA-Public Use
  Company Number: PHHO2009GB05496

PATIENT
  Sex: Male

DRUGS (2)
  1. STARLIX DJN+TAB [Suspect]
     Indication: GLUCOSE TOLERANCE IMPAIRED
     Dosage: 60 MG
     Route: 048
  2. PLACEBO [Suspect]
     Dosage: CODE NOT BROKEN
     Route: 048

REACTIONS (2)
  - ABDOMINAL DISTENSION [None]
  - URINARY TRACT INFECTION [None]
